FAERS Safety Report 8309663-1 (Version None)
Quarter: 2012Q2

REPORT INFORMATION
  Report Type: 
  Country: None (occurrence: None)
  Receive Date: 20120425
  Receipt Date: 20120419
  Transmission Date: 20120825
  Serious: Yes (Hospitalization, Other)
  Sender: FDA-Public Use
  Company Number: US-JNJFOC-20120410423

PATIENT
  Sex: Female
  Weight: 50.8 kg

DRUGS (10)
  1. DURAGESIC-100 [Suspect]
     Dosage: 100 UG/HR + 25 UG/HR
     Route: 062
     Dates: start: 20090101
  2. DURAGESIC-100 [Suspect]
     Route: 062
     Dates: end: 20120201
  3. FISH OIL [Concomitant]
     Indication: BLOOD CHOLESTEROL
     Route: 065
  4. DURAGESIC-100 [Suspect]
     Route: 062
     Dates: start: 20080101
  5. UNKNOWN MEDICATION [Suspect]
     Indication: PRODUCT USED FOR UNKNOWN INDICATION
     Route: 065
     Dates: start: 20091231
  6. CITRACAL [Concomitant]
     Indication: PRODUCT USED FOR UNKNOWN INDICATION
     Route: 065
  7. MORPHINE [Suspect]
     Indication: SURGERY
     Route: 065
     Dates: start: 20090901, end: 20090101
  8. FENTANYL-100 [Suspect]
     Indication: BACK DISORDER
     Route: 062
  9. DURAGESIC-100 [Suspect]
     Route: 062
     Dates: start: 20120201
  10. DURAGESIC-100 [Suspect]
     Indication: BACK DISORDER
     Route: 062
     Dates: start: 20080101

REACTIONS (5)
  - PLEURAL EFFUSION [None]
  - VOMITING [None]
  - THERAPEUTIC RESPONSE UNEXPECTED WITH DRUG SUBSTITUTION [None]
  - MYOCARDIAL INFARCTION [None]
  - THROMBOSIS [None]
